FAERS Safety Report 4347095-1 (Version None)
Quarter: 2004Q2

REPORT INFORMATION
  Report Type: 
  Country: None (occurrence: None)
  Receive Date: 20040422
  Receipt Date: 20040412
  Transmission Date: 20050107
  Serious: Yes (Other)
  Sender: FDA-Public Use
  Company Number: CA-JNJFOC-20040400154

PATIENT
  Age: 60 Year
  Sex: Female

DRUGS (3)
  1. LEVOFLOXACIN [Suspect]
     Indication: BRONCHITIS
     Dosage: 500 MG, ORAL
     Route: 048
     Dates: start: 20040310, end: 20040320
  2. LIPITOR [Suspect]
     Dosage: 10 MG, ORAL
     Route: 048
  3. NEXIUM [Suspect]
     Dosage: 40 MG, ORAL
     Route: 048

REACTIONS (5)
  - CANDIDIASIS [None]
  - DRUG INTERACTION [None]
  - HYPERSENSITIVITY [None]
  - RASH MACULO-PAPULAR [None]
  - THROMBOCYTOPENIC PURPURA [None]
